FAERS Safety Report 17675583 (Version 3)
Quarter: 2020Q2

REPORT INFORMATION
  Report Type: Spontaneous
  Country: US (occurrence: US)
  Receive Date: 20200416
  Receipt Date: 20200519
  Transmission Date: 20200714
  Serious: Yes (Other)
  Sender: FDA-Public Use
  Company Number: US-HBP-2020US020307

PATIENT
  Sex: Male

DRUGS (1)
  1. VALCHLOR [Suspect]
     Active Substance: MECHLORETHAMINE
     Indication: CUTANEOUS T-CELL LYMPHOMA
     Dosage: THIN FILM, SINGLE
     Route: 061
     Dates: start: 20200206, end: 20200414

REACTIONS (16)
  - Application site wound [Recovered/Resolved]
  - Application site pruritus [Recovering/Resolving]
  - Product administration error [Unknown]
  - Condition aggravated [Recovered/Resolved]
  - Malaise [Unknown]
  - Application site exfoliation [Recovering/Resolving]
  - Application site erythema [Recovering/Resolving]
  - Application site infection [Recovered/Resolved]
  - Application site haemorrhage [Recovering/Resolving]
  - Application site scab [Unknown]
  - Intentional dose omission [Unknown]
  - Application site discolouration [Recovering/Resolving]
  - Application site pain [Recovering/Resolving]
  - Application site discharge [Recovered/Resolved]
  - Application site discomfort [Recovering/Resolving]
  - Product use issue [Unknown]
